FAERS Safety Report 25382834 (Version 4)
Quarter: 2025Q3

REPORT INFORMATION
  Report Type: Spontaneous
  Country: US (occurrence: US)
  Receive Date: 20250602
  Receipt Date: 20250903
  Transmission Date: 20251020
  Serious: Yes (Hospitalization, Other)
  Sender: SANOFI AVENTIS
  Company Number: US-SA-2025SA154081

PATIENT
  Age: 73 Year
  Sex: Male

DRUGS (23)
  1. DUPIXENT [Suspect]
     Active Substance: DUPILUMAB
     Indication: Chronic obstructive pulmonary disease
     Dosage: 300 MG, QOW
     Route: 058
     Dates: start: 20250424
  2. DUPIXENT [Suspect]
     Active Substance: DUPILUMAB
     Indication: Emphysema
  3. FARXIGA [Concomitant]
     Active Substance: DAPAGLIFLOZIN PROPANEDIOL
     Route: 048
  4. PROAIR HFA [Concomitant]
     Active Substance: ALBUTEROL SULFATE
     Route: 055
     Dates: start: 20221110
  5. ALBUTEROL\IPRATROPIUM [Concomitant]
     Active Substance: ALBUTEROL\IPRATROPIUM
     Route: 055
     Dates: start: 20240926
  6. EZETIMIBE [Concomitant]
     Active Substance: EZETIMIBE
     Route: 048
  7. BRENZAVVY [Concomitant]
     Active Substance: BEXAGLIFLOZIN
     Route: 048
  8. ALBUTEROL SULFATE [Concomitant]
     Active Substance: ALBUTEROL SULFATE
     Indication: Wheezing
     Route: 055
     Dates: start: 20250417
  9. ALBUTEROL SULFATE [Concomitant]
     Active Substance: ALBUTEROL SULFATE
     Indication: Dyspnoea
  10. SERTRALINE [Concomitant]
     Active Substance: SERTRALINE HYDROCHLORIDE
     Route: 048
  11. ATORVASTATIN [Concomitant]
     Active Substance: ATORVASTATIN
     Route: 048
  12. METFORMIN [Concomitant]
     Active Substance: METFORMIN HYDROCHLORIDE
     Route: 048
  13. IBUPROFEN [Concomitant]
     Active Substance: IBUPROFEN
     Route: 048
  14. INSULIN GLARGINE [Concomitant]
     Active Substance: INSULIN GLARGINE
     Route: 058
  15. TRELEGY ELLIPTA [Concomitant]
     Active Substance: FLUTICASONE FUROATE\UMECLIDINIUM BROMIDE\VILANTEROL TRIFENATATE
     Dosage: ONE INHALATION DAILY
     Route: 055
     Dates: start: 20210827
  16. OZEMPIC [Concomitant]
     Active Substance: SEMAGLUTIDE
     Route: 058
  17. AZITHROMYCIN [Concomitant]
     Active Substance: AZITHROMYCIN
     Indication: Pneumonia
     Dosage: TIW (I (ONE) ORAL MONDAY, WEDNESDAY, FRIDAY, TAKEN )
     Route: 048
     Dates: start: 20241202
  18. AZITHROMYCIN [Concomitant]
     Active Substance: AZITHROMYCIN
     Indication: Bronchitis chronic
  19. PREDNISONE [Concomitant]
     Active Substance: PREDNISONE
     Indication: Chronic obstructive pulmonary disease
     Dosage: 50 MG, QD
  20. PREDNISONE [Concomitant]
     Active Substance: PREDNISONE
     Dosage: 10 MG, QD
     Dates: start: 20250609
  21. OXYGEN [Concomitant]
     Active Substance: OXYGEN
     Indication: Respiratory failure
  22. NICOTINE [Concomitant]
     Active Substance: NICOTINE
     Indication: Nicotine dependence
  23. ROCEPHIN [Concomitant]
     Active Substance: CEFTRIAXONE SODIUM
     Indication: Pneumonia

REACTIONS (6)
  - Hyperglycaemia [Unknown]
  - Emphysema [Unknown]
  - Condition aggravated [Unknown]
  - Tricuspid valve incompetence [Unknown]
  - Chronic obstructive pulmonary disease [Unknown]
  - Product use in unapproved indication [Unknown]

NARRATIVE: CASE EVENT DATE: 20250101
